FAERS Safety Report 23035800 (Version 3)
Quarter: 2024Q1

REPORT INFORMATION
  Report Type: Spontaneous
  Country: DE (occurrence: DE)
  Receive Date: 20231006
  Receipt Date: 20240213
  Transmission Date: 20240410
  Serious: Yes (Life-Threatening, Hospitalization, Other)
  Sender: FDA-Public Use
  Company Number: DE-DCGMA-23201894

PATIENT
  Age: 64 Year
  Sex: Female
  Weight: 90 kg

DRUGS (7)
  1. METFORMIN [Suspect]
     Active Substance: METFORMIN HYDROCHLORIDE
     Indication: Type 2 diabetes mellitus
     Dosage: 1000 MILLIGRAM, TWO TIMES A DAY
     Route: 048
  2. EMPAGLIFLOZIN [Suspect]
     Active Substance: EMPAGLIFLOZIN
     Indication: Type 2 diabetes mellitus
     Dosage: 10 MILLIGRAM, EINNAHME SEIT MONATEN.
     Route: 048
  3. INSULIN GLARGINE [Concomitant]
     Active Substance: INSULIN GLARGINE
     Indication: Type 2 diabetes mellitus
     Dosage: 6 INTERNATIONAL UNIT, 0-0-06 IUADMINISTRATION DURATION } 6 MONTH
     Route: 058
  4. PANTOPRAZOLE SODIUM [Concomitant]
     Active Substance: PANTOPRAZOLE SODIUM
     Indication: Gastrooesophageal reflux disease
     Dosage: 40 MILLIGRAM, ONCE A DAY,1-0-0ADMINISTRATION DURATION} 6 MONTH
     Route: 048
  5. DESFERRIOXAMIN [Concomitant]
     Indication: Haemosiderosis
     Dosage: 2000 MILLIGRAM, ONCE A DAY,1-0-0ADMINISTRATION DURATION } 6 MONTH
     Route: 058
  6. IMATINIB [Concomitant]
     Active Substance: IMATINIB
     Indication: Chronic myeloid leukaemia
     Dosage: 400 MILLIGRAM,1-0-1ADMINISTRATION DURATION } 6 MONTH
     Route: 048
  7. SITAGLIPTIN [Concomitant]
     Active Substance: SITAGLIPTIN
     Indication: Type 2 diabetes mellitus
     Dosage: 50 MILLIGRAM, TWO TIMES A DAY, 1-0-1ADMINISTRATION DURATION } 6 MONTH
     Route: 048

REACTIONS (3)
  - Ketoacidosis [Recovering/Resolving]
  - Acute kidney injury [Recovering/Resolving]
  - Lactic acidosis [Recovering/Resolving]

NARRATIVE: CASE EVENT DATE: 20230904
